FAERS Safety Report 19552417 (Version 3)
Quarter: 2022Q4

REPORT INFORMATION
  Report Type: Spontaneous
  Country: CH (occurrence: CH)
  Receive Date: 20210715
  Receipt Date: 20221022
  Transmission Date: 20230113
  Serious: Yes (Other)
  Sender: FDA-Public Use
  Company Number: None

PATIENT
  Age: 72 Year
  Sex: Female

DRUGS (8)
  1. HALOPERIDOL DECANOATE [Suspect]
     Active Substance: HALOPERIDOL DECANOATE
     Indication: Agitation
     Dosage: IN TOTAL
     Route: 030
     Dates: start: 20210519
  2. HALOPERIDOL DECANOATE [Suspect]
     Active Substance: HALOPERIDOL DECANOATE
     Dosage: IN TOTAL
     Route: 030
     Dates: start: 20210519
  3. HALOPERIDOL DECANOATE [Suspect]
     Active Substance: HALOPERIDOL DECANOATE
     Dosage: IN TOTAL
     Route: 030
     Dates: start: 20210520
  4. HALDOL [Suspect]
     Active Substance: HALOPERIDOL
     Indication: Agitation
     Route: 048
     Dates: start: 20210520, end: 20210522
  5. HALDOL [Suspect]
     Active Substance: HALOPERIDOL
     Route: 048
     Dates: start: 20210523, end: 20210525
  6. MEMANTINE HYDROCHLORIDE [Concomitant]
     Active Substance: MEMANTINE HYDROCHLORIDE
     Route: 065
  7. CLOMETHIAZOLE EDISYLATE [Concomitant]
     Active Substance: CLOMETHIAZOLE EDISYLATE
     Dosage: AS NECESSARY
     Route: 065
     Dates: start: 20210519
  8. DAFALGAN [Concomitant]
     Active Substance: ACETAMINOPHEN
     Indication: Pain
     Dosage: AS NECESSARY
     Route: 065
     Dates: start: 20210519

REACTIONS (2)
  - Pyrexia [Recovered/Resolved]
  - Blood creatine phosphokinase increased [Recovered/Resolved]

NARRATIVE: CASE EVENT DATE: 20210521
